FAERS Safety Report 20472682 (Version 1)
Quarter: 2022Q1

REPORT INFORMATION
  Report Type: Spontaneous
  Country: US (occurrence: US)
  Receive Date: 20220215
  Receipt Date: 20220215
  Transmission Date: 20220423
  Serious: Yes (Death)
  Sender: FDA-Public Use
  Company Number: US-CADILA HEALTHCARE LIMITED-US-ZYDUS-074808

PATIENT

DRUGS (2)
  1. VORICONAZOLE [Suspect]
     Active Substance: VORICONAZOLE
     Indication: Antifungal prophylaxis
     Dosage: UNK
     Route: 048
  2. NYSTATIN [Suspect]
     Active Substance: NYSTATIN
     Indication: Mucormycosis
     Dosage: UNK
     Route: 061

REACTIONS (3)
  - Mucormycosis [Fatal]
  - Drug ineffective [Unknown]
  - Product prescribing error [Unknown]
